FAERS Safety Report 6807108-1 (Version None)
Quarter: 2010Q2

REPORT INFORMATION
  Report Type: 
  Country: None (occurrence: None)
  Receive Date: 20100628
  Receipt Date: 20100628
  Transmission Date: 20101027
  Serious: Yes (Other)
  Sender: FDA-Public Use
  Company Number: None

PATIENT
  Age: 76 Year
  Sex: Female
  Weight: 74.1 kg

DRUGS (7)
  1. GABAPENTIN [Suspect]
     Indication: NEUROPATHY PERIPHERAL
     Dosage: 300MG 4 DAILY 047
  2. CELEBREX [Concomitant]
  3. HYDROCODONE BITARTRATE [Concomitant]
  4. LEVOXYL [Concomitant]
  5. MIRAPEX [Concomitant]
  6. PREDNISONE TAB [Concomitant]
  7. LOTREL [Concomitant]

REACTIONS (7)
  - ABDOMINAL PAIN UPPER [None]
  - DECREASED APPETITE [None]
  - GASTROINTESTINAL INFECTION [None]
  - NAUSEA [None]
  - PRODUCT SUBSTITUTION ISSUE [None]
  - PRODUCT TASTE ABNORMAL [None]
  - WEIGHT DECREASED [None]
